FAERS Safety Report 4556021-1 (Version None)
Quarter: 2005Q1

REPORT INFORMATION
  Report Type: 
  Country: None (occurrence: None)
  Receive Date: 20050119
  Receipt Date: 20050111
  Transmission Date: 20050727
  Serious: Yes (Hospitalization)
  Sender: FDA-Public Use
  Company Number: PHBS2005SA00772

PATIENT
  Age: 60 Year
  Sex: Female

DRUGS (8)
  1. HUMULIN 70/30 [Concomitant]
     Dosage: 70 IU/DAY
  2. AMARYL [Concomitant]
     Dosage: 3 MG, QD
  3. APROVEL [Concomitant]
     Dosage: 200 MG, QD
  4. PANTOZOL [Concomitant]
     Dosage: 40 MG, QD
  5. OS-CAL [Concomitant]
     Dosage: 500 MG, QD
  6. ARCOXIA [Concomitant]
     Dosage: 90 MG, QD
  7. LOPID [Concomitant]
     Dosage: 600 MG, BID
  8. LESCOL XL [Suspect]
     Indication: DYSLIPIDAEMIA
     Dosage: 80 MG/DAY
     Route: 048

REACTIONS (14)
  - ALANINE AMINOTRANSFERASE INCREASED [None]
  - ASPARTATE AMINOTRANSFERASE INCREASED [None]
  - BLOOD CREATINE PHOSPHOKINASE INCREASED [None]
  - BLOOD CREATINE PHOSPHOKINASE MB [None]
  - BLOOD UREA INCREASED [None]
  - DIZZINESS [None]
  - GLYCOSYLATED HAEMOGLOBIN INCREASED [None]
  - HEPATOMEGALY [None]
  - MUSCULAR WEAKNESS [None]
  - MYALGIA [None]
  - MYOGLOBIN URINE PRESENT [None]
  - RED BLOOD CELL SEDIMENTATION RATE INCREASED [None]
  - RHABDOMYOLYSIS [None]
  - VERTIGO [None]
